FAERS Safety Report 9775701 (Version 3)
Quarter: 2014Q1

REPORT INFORMATION
  Report Type: Spontaneous
  Country: TR (occurrence: TR)
  Receive Date: 20131220
  Receipt Date: 20140120
  Transmission Date: 20141002
  Serious: Yes (Hospitalization, Other)
  Sender: FDA-Public Use
  Company Number: TR-ABBVIE-13P-161-1170043-00

PATIENT
  Age: 60 Year
  Sex: Male
  Weight: 72 kg

DRUGS (2)
  1. HUMIRA [Suspect]
     Indication: PSORIASIS
     Route: 058
     Dates: start: 20130328, end: 20131113
  2. STARLIX [Concomitant]
     Indication: DIABETES MELLITUS
     Route: 048

REACTIONS (2)
  - Inguinal hernia [Recovered/Resolved]
  - Cataract [Recovered/Resolved]
